FAERS Safety Report 6583684-1 (Version None)
Quarter: 2010Q1

REPORT INFORMATION
  Report Type: 
  Country: None (occurrence: None)
  Receive Date: 20100216
  Receipt Date: 20100205
  Transmission Date: 20100710
  Serious: Yes (Other)
  Sender: FDA-Public Use
  Company Number: US-SANOFI-AVENTIS-2010SA008447

PATIENT
  Sex: Female

DRUGS (4)
  1. APIDRA [Suspect]
     Dosage: DOSE:6 UNIT(S)
     Route: 058
     Dates: start: 20080101
  2. LANTUS [Suspect]
     Route: 058
  3. OPTICLICK [Suspect]
  4. SOLOSTAR [Suspect]

REACTIONS (2)
  - DEMENTIA [None]
  - VISION BLURRED [None]
